FAERS Safety Report 8589559-0 (Version None)
Quarter: 2012Q3

REPORT INFORMATION
  Report Type: 
  Country: None (occurrence: None)
  Receive Date: 20120813
  Receipt Date: 20120808
  Transmission Date: 20120928
  Serious: Yes (Hospitalization, Other)
  Sender: FDA-Public Use
  Company Number: DE-ROCHE-1048854

PATIENT
  Sex: Female
  Weight: 62 kg

DRUGS (4)
  1. AVASTIN [Suspect]
     Indication: COLON CANCER METASTATIC
     Route: 042
     Dates: start: 20070703, end: 20071023
  2. FLUOROURACIL [Suspect]
     Indication: COLON CANCER METASTATIC
     Route: 042
     Dates: start: 20070612, end: 20071023
  3. LEUCOVORIN SODIUM [Concomitant]
     Indication: COLON CANCER METASTATIC
     Route: 042
     Dates: start: 20070612, end: 20071023
  4. IRINOTECAN HYDROCHLORIDE [Suspect]
     Indication: COLON CANCER METASTATIC
     Route: 042
     Dates: start: 20070612, end: 20071023

REACTIONS (2)
  - HYPERTHYROIDISM [None]
  - PNEUMONIA [None]
